FAERS Safety Report 18245792 (Version 1)
Quarter: 2020Q3

REPORT INFORMATION
  Report Type: Spontaneous
  Country: US (occurrence: US)
  Receive Date: 20200909
  Receipt Date: 20200909
  Transmission Date: 20201103
  Serious: No
  Sender: FDA-Public Use
  Company Number: US-APOTEX-2020AP016412

PATIENT
  Sex: Female

DRUGS (1)
  1. TRAVOPROST OPHTHALMIC SOLUTION, USP (IONIC BUFFERED SOLUTION) [Suspect]
     Active Substance: TRAVOPROST
     Indication: PRODUCT USED FOR UNKNOWN INDICATION
     Dosage: UNK
     Route: 065

REACTIONS (2)
  - Eye pruritus [Unknown]
  - Drug delivery system issue [Unknown]
